FAERS Safety Report 23971706 (Version 2)
Quarter: 2024Q2

REPORT INFORMATION
  Report Type: Spontaneous
  Country: US (occurrence: US)
  Receive Date: 20240613
  Receipt Date: 20240619
  Transmission Date: 20240716
  Serious: Yes (Other)
  Sender: FDA-Public Use
  Company Number: US-002147023-NVSC2024US120647

PATIENT
  Sex: Female

DRUGS (3)
  1. ENTRESTO [Suspect]
     Active Substance: SACUBITRIL\VALSARTAN
     Indication: Product used for unknown indication
     Dosage: UNK
     Route: 065
  2. MILRINONE [Suspect]
     Active Substance: MILRINONE
     Indication: Product used for unknown indication
     Dosage: UNK
     Route: 065
  3. METOPROLOL [Concomitant]
     Active Substance: METOPROLOL
     Indication: Product used for unknown indication
     Dosage: UNK
     Route: 065

REACTIONS (12)
  - Cataract [Unknown]
  - Syncope [Unknown]
  - Fear [Unknown]
  - Lacrimation increased [Unknown]
  - Hypoacusis [Unknown]
  - Headache [Unknown]
  - Hypotension [Unknown]
  - Dizziness [Unknown]
  - Gait inability [Unknown]
  - Left ventricular hypertrophy [Unknown]
  - Pain [Unknown]
  - Anxiety [Unknown]
